FAERS Safety Report 14785338 (Version 1)
Quarter: 2018Q2

REPORT INFORMATION
  Report Type: Spontaneous
  Country: US (occurrence: US)
  Receive Date: 20180420
  Receipt Date: 20180420
  Transmission Date: 20180711
  Serious: Yes (Other)
  Sender: FDA-Public Use
  Company Number: US-JNJFOC-20180409218

PATIENT
  Age: 59 Year
  Sex: Male
  Weight: 75.6 kg

DRUGS (3)
  1. XARELTO [Suspect]
     Active Substance: RIVAROXABAN
     Indication: PRODUCT USED FOR UNKNOWN INDICATION
     Route: 048
  2. PLAVIX [Concomitant]
     Active Substance: CLOPIDOGREL BISULFATE
     Route: 065
  3. ASA [Concomitant]
     Active Substance: ASPIRIN
     Route: 065

REACTIONS (5)
  - Sleep apnoea syndrome [Unknown]
  - Hiatus hernia [Unknown]
  - Osteoarthritis [Unknown]
  - Type V hyperlipidaemia [Unknown]
  - Cough [Unknown]
